FAERS Safety Report 5614397-8 (Version None)
Quarter: 2008Q1

REPORT INFORMATION
  Report Type: 
  Country: None (occurrence: None)
  Receive Date: 20080205
  Receipt Date: 20080121
  Transmission Date: 20080703
  Serious: Yes (Other)
  Sender: FDA-Public Use
  Company Number: US-PFIZER INC-2008008930

PATIENT
  Sex: Male
  Weight: 79.545 kg

DRUGS (1)
  1. CHANTIX [Suspect]
     Indication: SMOKING CESSATION THERAPY
     Dates: start: 20071201, end: 20080118

REACTIONS (4)
  - AGITATION [None]
  - CONFUSIONAL STATE [None]
  - FEELING ABNORMAL [None]
  - IMPAIRED WORK ABILITY [None]
